FAERS Safety Report 7982947-2 (Version None)
Quarter: 2011Q4

REPORT INFORMATION
  Report Type: 
  Country: None (occurrence: None)
  Receive Date: 20111215
  Receipt Date: 20111213
  Transmission Date: 20120403
  Serious: Yes (Hospitalization)
  Sender: FDA-Public Use
  Company Number: US-MERCK-1110USA02744

PATIENT
  Age: 75 Year
  Sex: Male

DRUGS (8)
  1. FOSAMAX [Suspect]
     Indication: OSTEOPOROSIS
     Route: 048
     Dates: start: 20060402, end: 20060910
  2. COUMADIN [Concomitant]
     Indication: ATRIAL FIBRILLATION
     Route: 065
     Dates: start: 20000101
  3. ACTONEL [Suspect]
     Indication: OSTEOPOROSIS
     Route: 048
     Dates: start: 20020305, end: 20060406
  4. VITAMINS (UNSPECIFIED) [Concomitant]
     Route: 065
  5. DIGOXIN [Concomitant]
     Indication: MITRAL VALVE PROLAPSE
     Route: 065
     Dates: start: 19990101
  6. CALCIUM (UNSPECIFIED) [Concomitant]
     Route: 065
  7. FOSAMAX PLUS D [Suspect]
     Indication: OSTEOPOROSIS
     Route: 048
     Dates: start: 20060911, end: 20100328
  8. VESICARE [Concomitant]
     Indication: HYPERTONIC BLADDER
     Route: 065
     Dates: start: 20010101

REACTIONS (5)
  - COMPRESSION FRACTURE [None]
  - ERECTILE DYSFUNCTION [None]
  - HERNIA [None]
  - FEMUR FRACTURE [None]
  - GASTROINTESTINAL DISORDER [None]
